FAERS Safety Report 19411188 (Version 9)
Quarter: 2021Q3

REPORT INFORMATION
  Report Type: Report from Study
  Country: JP (occurrence: JP)
  Receive Date: 20210614
  Receipt Date: 20210916
  Transmission Date: 20211014
  Serious: Yes (Hospitalization)
  Sender: FDA-Public Use
  Company Number: JP-NOVOPROD-817849

PATIENT
  Age: 79 Year
  Sex: Male
  Weight: 75 kg

DRUGS (18)
  1. SOLDEM 3A [Concomitant]
     Active Substance: CARBOHYDRATES\POTASSIUM CHLORIDE\SODIUM CHLORIDE\SODIUM LACTATE
     Indication: CHOLELITHIASIS
     Dosage: UNK
     Dates: start: 20210107, end: 20210107
  2. WYSTAL [Concomitant]
     Active Substance: CEFOPERAZONE SODIUM\SULBACTAM SODIUM
     Dosage: UNK
     Dates: start: 20210108, end: 20210108
  3. LIDOCAINE HYDROCHLORIDE JELLY [Concomitant]
     Active Substance: LIDOCAINE HYDROCHLORIDE
     Indication: CHOLELITHIASIS
     Dates: start: 20210107, end: 20210107
  4. DIMETHICONE. [Concomitant]
     Active Substance: DIMETHICONE
     Indication: CHOLELITHIASIS
     Dates: start: 20210107, end: 20210107
  5. LIDOCAINE. [Concomitant]
     Active Substance: LIDOCAINE
     Indication: CHOLELITHIASIS
     Dates: start: 20210107, end: 20210107
  6. FLUNITRAZEPAM [Concomitant]
     Active Substance: FLUNITRAZEPAM
     Indication: CHOLELITHIASIS
     Dates: start: 20210107, end: 20210107
  7. PETHIDINE HYDROCHLORIDE [Concomitant]
     Active Substance: MEPERIDINE HYDROCHLORIDE
     Indication: CHOLELITHIASIS
     Dates: start: 20210107, end: 20210107
  8. LACTEC [Concomitant]
     Active Substance: CALCIUM CHLORIDE ANHYDROUS\POTASSIUM CHLORIDE\SODIUM CHLORIDE\SODIUM LACTATE
     Indication: CHOLELITHIASIS
     Dates: start: 20210107, end: 20210107
  9. DICLOFENAC SODIUM. [Concomitant]
     Active Substance: DICLOFENAC SODIUM
     Indication: CHOLELITHIASIS
     Dates: start: 20210107, end: 20210107
  10. GABEXATE MESILATE [Concomitant]
     Active Substance: GABEXATE MESYLATE
     Indication: CHOLELITHIASIS
     Dates: start: 20210107, end: 20210108
  11. PRONASE [Concomitant]
     Active Substance: PROTEASE
     Indication: CHOLELITHIASIS
     Dates: start: 20210107, end: 20210107
  12. SEMAGLUTIDE B 1.34 MG/ML PDS290 [Suspect]
     Active Substance: SEMAGLUTIDE
     Dosage: UNK
     Route: 058
     Dates: start: 20210726, end: 20210802
  13. SEMAGLUTIDE B 1.34 MG/ML PDS290 [Suspect]
     Active Substance: SEMAGLUTIDE
     Indication: TYPE 2 DIABETES MELLITUS
     Dosage: 0.5,MG,ONCE PER WEEK
     Route: 058
     Dates: start: 20191224, end: 20210525
  14. SEMAGLUTIDE B 1.34 MG/ML PDS290 [Suspect]
     Active Substance: SEMAGLUTIDE
     Dosage: 0.25 MG ONCE PER WEEK
     Route: 058
     Dates: start: 20210713, end: 20210713
  15. WYSTAL [Concomitant]
     Active Substance: CEFOPERAZONE SODIUM\SULBACTAM SODIUM
     Indication: CHOLELITHIASIS
     Dates: start: 20210107, end: 20210107
  16. THROMBIN [Concomitant]
     Active Substance: THROMBIN
     Indication: CHOLELITHIASIS
     Dates: start: 20210107, end: 20210107
  17. SOLDEM 3A [Concomitant]
     Active Substance: CARBOHYDRATES\POTASSIUM CHLORIDE\SODIUM CHLORIDE\SODIUM LACTATE
     Dosage: UNK
     Dates: start: 20210108, end: 20210108
  18. GLUCAGON. [Concomitant]
     Active Substance: GLUCAGON
     Indication: CHOLELITHIASIS
     Dates: start: 20210107, end: 20210107

REACTIONS (1)
  - Cholecystitis [Recovered/Resolved]

NARRATIVE: CASE EVENT DATE: 20210530
